FAERS Safety Report 21319736 (Version 1)
Quarter: 2022Q3

REPORT INFORMATION
  Report Type: Spontaneous
  Country: US (occurrence: US)
  Receive Date: 20220911
  Receipt Date: 20220911
  Transmission Date: 20221026
  Serious: No
  Sender: FDA-Public Use
  Company Number: US-SA-SAC20220902001286

PATIENT
  Sex: Female

DRUGS (1)
  1. KEVZARA [Suspect]
     Active Substance: SARILUMAB
     Dosage: 200MG, QOW
     Route: 058
     Dates: start: 202207

REACTIONS (4)
  - Injection site erythema [Recovered/Resolved]
  - Condition aggravated [Recovered/Resolved]
  - Injection site pruritus [Unknown]
  - Condition aggravated [Unknown]
